FAERS Safety Report 8790753 (Version 1)
Quarter: 2012Q4

REPORT INFORMATION
  Report Type: Spontaneous
  Country: DE (occurrence: None)
  Receive Date: 20120907
  Receipt Date: 20120907
  Transmission Date: 20130627
  Serious: Yes (Hospitalization, Other)
  Sender: FDA-Public Use
  Company Number: NSR_00630_2012

PATIENT
  Age: 74 Year
  Sex: Female
  Weight: 43 kg

DRUGS (6)
  1. VENLAFAXINE [Suspect]
     Indication: DEPRESSION
     Dosage: (DF)
  2. ANTIBIOTICS [Concomitant]
  3. L-THYROXINE /00068001/ [Concomitant]
  4. BISOPROLOL [Concomitant]
  5. SALMETEROL [Concomitant]
  6. FENOTEROL W/IPRATROPIUM BROMIDE [Concomitant]

REACTIONS (2)
  - Inappropriate antidiuretic hormone secretion [None]
  - Lung infection [None]
